FAERS Safety Report 9504841 (Version 1)
Quarter: 2013Q3

REPORT INFORMATION
  Report Type: Report from Study
  Country: US (occurrence: US)
  Receive Date: 20130906
  Receipt Date: 20130906
  Transmission Date: 20140515
  Serious: Yes (Hospitalization, Other)
  Sender: FDA-Public Use
  Company Number: US-ABBOTT-13P-163-1139868-00

PATIENT
  Age: 62 Year
  Sex: Male
  Weight: 83.99 kg

DRUGS (3)
  1. HUMIRA [Suspect]
     Indication: HIDRADENITIS
     Dates: start: 201205, end: 201208
  2. HUMIRA [Suspect]
     Dates: start: 201208, end: 201305
  3. NICOTINE PATCHES [Concomitant]
     Indication: EX-TOBACCO USER
     Dates: start: 201307

REACTIONS (5)
  - Transient ischaemic attack [Not Recovered/Not Resolved]
  - Fall [Unknown]
  - Asthenia [Unknown]
  - Fall [Unknown]
  - Drug ineffective [Recovered/Resolved]
